FAERS Safety Report 4874192-4 (Version None)
Quarter: 2006Q1

REPORT INFORMATION
  Report Type: 
  Country: None (occurrence: None)
  Receive Date: 20060104
  Receipt Date: 20051219
  Transmission Date: 20060701
  Serious: Yes (Hospitalization, Other)
  Sender: FDA-Public Use
  Company Number: 2005170406

PATIENT
  Age: 61 Year
  Sex: Female
  Weight: 73.0291 kg

DRUGS (4)
  1. LIPITOR [Suspect]
     Indication: BLOOD CHOLESTEROL INCREASED
     Dosage: 10 MG (10 MG, 1 IN 1 D)
     Dates: start: 20020101
  2. CELEBREX [Suspect]
     Indication: PAIN
     Dates: start: 20020101
  3. ZYRTEC [Suspect]
     Indication: MULTIPLE ALLERGIES
  4. ACCURETIC [Suspect]
     Indication: HYPERTENSION

REACTIONS (9)
  - ARTHRALGIA [None]
  - BACK PAIN [None]
  - BLOOD URINE PRESENT [None]
  - HYPERTENSION [None]
  - MULTIPLE ALLERGIES [None]
  - OVARIAN DISORDER [None]
  - POLYP [None]
  - RECTAL POLYP [None]
  - RHEUMATOID ARTHRITIS [None]
